FAERS Safety Report 12616639 (Version 1)
Quarter: 2016Q3

REPORT INFORMATION
  Report Type: Spontaneous
  Country: US (occurrence: US)
  Receive Date: 20160802
  Receipt Date: 20160802
  Transmission Date: 20161109
  Serious: Yes (Other)
  Sender: FDA-Public Use
  Company Number: US-BAUSCH-BL-2016-017927

PATIENT
  Age: 68 Year
  Sex: Female

DRUGS (3)
  1. DUREZOL [Suspect]
     Active Substance: DIFLUPREDNATE
     Indication: CATARACT OPERATION
     Route: 047
  2. BESIVANCE [Concomitant]
     Active Substance: BESIFLOXACIN
     Indication: PRODUCT USED FOR UNKNOWN INDICATION
  3. PROLENSA [Suspect]
     Active Substance: BROMFENAC SODIUM
     Indication: PRODUCT USED FOR UNKNOWN INDICATION
     Route: 047

REACTIONS (5)
  - Anterior chamber cell [Unknown]
  - Eye pain [Unknown]
  - Ocular discomfort [Unknown]
  - Vision blurred [Not Recovered/Not Resolved]
  - Posterior capsule opacification [Unknown]

NARRATIVE: CASE EVENT DATE: 20160125
